FAERS Safety Report 11927372 (Version 1)
Quarter: 2016Q1

REPORT INFORMATION
  Report Type: Spontaneous
  Country: US (occurrence: US)
  Receive Date: 20160119
  Receipt Date: 20160119
  Transmission Date: 20160526
  Serious: No
  Sender: FDA-Public Use
  Company Number: US-ACTELION PHARMACEUTICALS US, INC.-A-US2014-110138

PATIENT
  Age: 39 Year
  Sex: Male

DRUGS (4)
  1. VALCHLOR [Suspect]
     Active Substance: MECHLORETHAMINE
     Dosage: 0.016 %, UNK
     Route: 061
     Dates: start: 201410
  2. VALCHLOR [Suspect]
     Active Substance: MECHLORETHAMINE
     Indication: MYCOSIS FUNGOIDES
     Dosage: UNK
     Route: 061
     Dates: start: 20140925
  3. LIPITOR [Concomitant]
     Active Substance: ATORVASTATIN CALCIUM
  4. TRETINOIN. [Concomitant]
     Active Substance: TRETINOIN

REACTIONS (3)
  - Therapeutic response decreased [Recovering/Resolving]
  - Skin hyperpigmentation [Unknown]
  - Disease progression [Not Recovered/Not Resolved]
